FAERS Safety Report 6092531-6 (Version None)
Quarter: 2009Q1

REPORT INFORMATION
  Report Type: 
  Country: None (occurrence: None)
  Receive Date: 20090225
  Receipt Date: 20090217
  Transmission Date: 20090719
  Serious: Yes (Life-Threatening, Hospitalization, Disabling)
  Sender: FDA-Public Use
  Company Number: JP-AVENTIS-200910258JP

PATIENT
  Age: 77 Year
  Sex: Male

DRUGS (10)
  1. AMARYL [Suspect]
     Indication: TYPE 2 DIABETES MELLITUS
     Route: 048
     Dates: start: 20081001, end: 20090112
  2. AMARYL [Suspect]
     Route: 048
     Dates: start: 20080812, end: 20080930
  3. CARNACULIN                         /00088101/ [Concomitant]
     Indication: HYPERTENSION
     Dosage: DOSE: 2 TBLS
     Route: 048
  4. GLUCOBAY [Concomitant]
     Indication: TYPE 2 DIABETES MELLITUS
     Route: 048
     Dates: start: 20080813, end: 20090112
  5. SYMMETREL [Concomitant]
     Route: 048
     Dates: start: 20020626
  6. BUP-4 [Concomitant]
     Indication: BENIGN PROSTATIC HYPERPLASIA
     Dosage: DOSE: 2 TBLS
     Route: 048
  7. LUPRAC [Concomitant]
     Route: 048
  8. MAGMITT [Concomitant]
     Indication: CONSTIPATION
     Route: 048
  9. ARICEPT ODT [Concomitant]
     Indication: DEMENTIA ALZHEIMER'S TYPE
     Route: 048
     Dates: start: 19910421
  10. SERMION [Concomitant]
     Indication: DEMENTIA ALZHEIMER'S TYPE
     Route: 048
     Dates: start: 19910421

REACTIONS (2)
  - HYPOGLYCAEMIC COMA [None]
  - HYPOGLYCAEMIC ENCEPHALOPATHY [None]
